FAERS Safety Report 22098871 (Version 1)
Quarter: 2023Q1

REPORT INFORMATION
  Report Type: Spontaneous
  Country: US (occurrence: US)
  Receive Date: 20230315
  Receipt Date: 20230315
  Transmission Date: 20230418
  Serious: No
  Sender: FDA-Public Use
  Company Number: US-BIOVITRUM-2023-US-006817

PATIENT
  Sex: Male
  Weight: 4.08 kg

DRUGS (2)
  1. SYNAGIS [Suspect]
     Active Substance: PALIVIZUMAB
     Indication: Antiviral prophylaxis
     Dosage: ONCE A MONTH
     Route: 030
     Dates: start: 20230201
  2. IRON\VITAMINS [Concomitant]
     Active Substance: IRON\VITAMINS
     Indication: Product used for unknown indication

REACTIONS (1)
  - Respiration abnormal [Not Recovered/Not Resolved]
